FAERS Safety Report 8060013-8 (Version None)
Quarter: 2012Q1

REPORT INFORMATION
  Report Type: 
  Country: None (occurrence: None)
  Receive Date: 20120120
  Receipt Date: 20120117
  Transmission Date: 20120608
  Serious: Yes (Other)
  Sender: FDA-Public Use
  Company Number: GXKR2012DE000606

PATIENT

DRUGS (1)
  1. MIRTAZAPINE [Suspect]
     Indication: DEPRESSION
     Dosage: 15 MG/DAY
     Route: 048
     Dates: start: 20111206, end: 20111217

REACTIONS (1)
  - SELF INJURIOUS BEHAVIOUR [None]
